FAERS Safety Report 19202759 (Version 2)
Quarter: 2021Q3

REPORT INFORMATION
  Report Type: Spontaneous
  Country: US (occurrence: US)
  Receive Date: 20210502
  Receipt Date: 20210706
  Transmission Date: 20211014
  Serious: Yes (Death, Hospitalization, Other)
  Sender: FDA-Public Use
  Company Number: NVSC2021US099051

PATIENT
  Age: 98 Year
  Sex: Female
  Weight: 56.15 kg

DRUGS (3)
  1. MEKINIST [Suspect]
     Active Substance: TRAMETINIB DIMETHYL SULFOXIDE
     Indication: PAPILLARY THYROID CANCER
     Dosage: 1.5 MG, QD
     Route: 048
     Dates: start: 20210315, end: 20210412
  2. TAFINLAR [Suspect]
     Active Substance: DABRAFENIB MESYLATE
     Indication: PAPILLARY THYROID CANCER
     Dosage: 100 MG, Q12H
     Route: 048
     Dates: start: 20210315, end: 20210412
  3. MEKINIST [Suspect]
     Active Substance: TRAMETINIB DIMETHYL SULFOXIDE
     Indication: METASTASIS

REACTIONS (7)
  - Cholecystitis acute [Fatal]
  - Acute kidney injury [Fatal]
  - Weight decreased [Not Recovered/Not Resolved]
  - Decreased appetite [Not Recovered/Not Resolved]
  - Thrombocytopenia [Not Recovered/Not Resolved]
  - Thyroid cancer recurrent [Fatal]
  - Sepsis [Unknown]

NARRATIVE: CASE EVENT DATE: 20210408
